FAERS Safety Report 8492157-0 (Version None)
Quarter: 2012Q2

REPORT INFORMATION
  Report Type: 
  Country: None (occurrence: None)
  Receive Date: 20120618
  Receipt Date: 20120604
  Transmission Date: 20120825
  Serious: Yes (Hospitalization)
  Sender: FDA-Public Use
  Company Number: 2012032556

PATIENT
  Age: 66 Year
  Sex: Male

DRUGS (15)
  1. GLUCOPHAGE [Concomitant]
  2. FORLAX (RACROGOL) [Concomitant]
  3. PRIVIGEN [Suspect]
     Indication: ENCEPHALITIS
     Dosage: 20G - 100MG/ML, 50 G TOTAL, INTRAVENOUS (NOT OTHERWIS  SPECIFIED)
     Route: 042
     Dates: start: 20120418, end: 20120420
  4. PRIVIGEN [Suspect]
     Indication: ENCEPHALITIS
     Dosage: 20G - 100MG/ML, 50 G TOTAL, INTRAVENOUS (NOT OTHERWIS  SPECIFIED)
     Route: 042
     Dates: start: 20111213
  5. PRIVIGEN [Suspect]
  6. UREA(UREA) [Concomitant]
  7. ANTIALLERGIC AGENTS, EXCL CORTICOSTEROIDS (ANTIALLERGIC AGENTS, EXCL C [Concomitant]
  8. KEPPRA [Concomitant]
  9. ANTIEPILEPTICS (ANTIEPILEPTICS) [Concomitant]
  10. OSTRAM (CALCIUM PHOSPHATE) [Concomitant]
  11. IMOVANE (ZOPICLONE) [Concomitant]
  12. NICARDIPINE HYDROCHLORIDE [Concomitant]
  13. NEXIUM [Concomitant]
  14. PROTELOS (PROTELOS) [Concomitant]
  15. PREDNISOLONE [Concomitant]

REACTIONS (11)
  - AGITATION [None]
  - TACHYCARDIA [None]
  - DYSPNOEA [None]
  - OXYGEN SATURATION ABNORMAL [None]
  - HYPERTENSION [None]
  - SEPTIC SHOCK [None]
  - LIVEDO RETICULARIS [None]
  - PYREXIA [None]
  - CHILLS [None]
  - ABDOMINAL RIGIDITY [None]
  - OFF LABEL USE [None]
